FAERS Safety Report 13904974 (Version 1)
Quarter: 2017Q3

REPORT INFORMATION
  Report Type: Spontaneous
  Country: US (occurrence: US)
  Receive Date: 20170824
  Receipt Date: 20170824
  Transmission Date: 20171127
  Serious: Yes (Disabling)
  Sender: FDA-Public Use
  Company Number: None

PATIENT
  Age: 59 Year
  Sex: Female
  Weight: 78.75 kg

DRUGS (6)
  1. TRAMADOL. [Concomitant]
     Active Substance: TRAMADOL
  2. WELLBUTRIN [Concomitant]
     Active Substance: BUPROPION HYDROCHLORIDE
  3. LEVOFLOXCIN HEMIHYDRATE [Suspect]
     Active Substance: LEVOFLOXACIN
     Indication: SINUSITIS
     Dosage: ?          QUANTITY:60 CAPSULE(S);?
     Route: 055
  4. LIPITOR [Concomitant]
     Active Substance: ATORVASTATIN CALCIUM
  5. VITAMIN D [Concomitant]
     Active Substance: CHOLECALCIFEROL
  6. LOSARTAN. [Concomitant]
     Active Substance: LOSARTAN

REACTIONS (14)
  - Pain in extremity [None]
  - Neck pain [None]
  - Spondylolisthesis [None]
  - Quality of life decreased [None]
  - Trigger finger [None]
  - Back pain [None]
  - Carpal tunnel syndrome [None]
  - Gait inability [None]
  - Neuropathy peripheral [None]
  - Fatigue [None]
  - Insomnia [None]
  - Loss of personal independence in daily activities [None]
  - Tendonitis [None]
  - Panic attack [None]

NARRATIVE: CASE EVENT DATE: 20140325
